FAERS Safety Report 5199178-4 (Version None)
Quarter: 2007Q1

REPORT INFORMATION
  Report Type: 
  Country: None (occurrence: None)
  Receive Date: 20070104
  Receipt Date: 20061228
  Transmission Date: 20070707
  Serious: Yes (Hospitalization, Other)
  Sender: FDA-Public Use
  Company Number: FR-ABBOTT-07P-056-0354773-00

PATIENT
  Age: 41 Year
  Sex: Male

DRUGS (6)
  1. RITONAVIR [Suspect]
     Indication: HIV TEST POSITIVE
     Route: 065
  2. APTIVUS [Suspect]
     Indication: HIV TEST POSITIVE
     Route: 065
  3. ABACAVIR [Suspect]
     Indication: HIV TEST POSITIVE
     Route: 065
  4. LAMIVUDINE [Suspect]
     Indication: HIV TEST POSITIVE
     Route: 065
  5. DIDANOSINE [Suspect]
     Indication: HIV TEST POSITIVE
     Route: 065
  6. SAQUINAVIR [Suspect]
     Indication: HIV TEST POSITIVE
     Route: 065

REACTIONS (3)
  - BLOOD HIV RNA INCREASED [None]
  - KAPOSI'S SARCOMA [None]
  - SPLENIC RUPTURE [None]
